FAERS Safety Report 24397314 (Version 1)
Quarter: 2024Q4

REPORT INFORMATION
  Report Type: Spontaneous
  Country: US (occurrence: None)
  Receive Date: 20241004
  Receipt Date: 20241004
  Transmission Date: 20250114
  Serious: Yes (Death)
  Sender: Public
  Company Number: None

PATIENT
  Age: 77 Year
  Sex: Male
  Weight: 84.82 kg

DRUGS (23)
  1. POMALYST [Suspect]
     Active Substance: POMALIDOMIDE
     Indication: Plasma cell myeloma
     Dosage: 3 MG  21 DAYS ON ORAL ?
     Route: 048
     Dates: start: 20210715, end: 20241003
  2. CYCLOPHOSPHAMIDE [Suspect]
     Active Substance: CYCLOPHOSPHAMIDE
     Indication: Plasma cell myeloma
     Dosage: 300 MG  3 WKS ON + 1 OFF ORAL?
     Route: 048
     Dates: start: 20240112, end: 20241003
  3. Pomalyst 3 mg capsules [Concomitant]
  4. CYCLOPHOSPHAMIDE [Concomitant]
     Active Substance: CYCLOPHOSPHAMIDE
  5. LACTULOSE [Concomitant]
     Active Substance: LACTULOSE
  6. Acyclovir 400 mg tabs [Concomitant]
  7. Dexamethasone 4 mg tabs [Concomitant]
  8. Docusate sodium 100 mg [Concomitant]
  9. Lyrica 75 mg capsules [Concomitant]
  10. folic acid 1 mg [Concomitant]
  11. Metoprolol ER 100 MG [Concomitant]
  12. Morphine ER 15 MG [Concomitant]
  13. MOVANTIK [Concomitant]
     Active Substance: NALOXEGOL OXALATE
  14. Vitamind D 3 5000 IU DROPS [Concomitant]
  15. CALCIUM CARBONATE 500 MG CHEWABLE TABS [Concomitant]
  16. Diltiazem CD120 MG [Concomitant]
  17. Eliquis 5  mg [Concomitant]
  18. ROSUVASTATIN [Concomitant]
     Active Substance: ROSUVASTATIN
  19. Potassium Chloride 20 MEQ TABS [Concomitant]
  20. Bumetanide 1 mg tabs [Concomitant]
  21. Vitamin B12 1000 TABS [Concomitant]
  22. Tylenol 325 mg tabs [Concomitant]
  23. Darzalex Faspro 15 ml solu [Concomitant]

REACTIONS (5)
  - Atrial fibrillation [None]
  - Gastrointestinal infection [None]
  - Urinary tract infection [None]
  - Sepsis [None]
  - Organ failure [None]

NARRATIVE: CASE EVENT DATE: 20241002
